FAERS Safety Report 16076182 (Version 2)
Quarter: 2019Q2

REPORT INFORMATION
  Report Type: Report from Study
  Country: DE (occurrence: DE)
  Receive Date: 20190315
  Receipt Date: 20190510
  Transmission Date: 20190711
  Serious: Yes (Life-Threatening, Disabling, Congenital Anomaly)
  Sender: FDA-Public Use
  Company Number: DE-ACCORD-112745

PATIENT
  Sex: Male

DRUGS (3)
  1. OLMESARTAN/OLMESARTAN MEDOXOMIL [Suspect]
     Active Substance: OLMESARTAN MEDOXOMIL
     Indication: HYPERTENSION
     Dosage: 10 MILLIGRAM DAILY
     Route: 064
  2. PROGESTERONE. [Concomitant]
     Active Substance: PROGESTERONE
     Indication: HYPERTENSION
     Route: 064
  3. BISOPROLOL [Concomitant]
     Active Substance: BISOPROLOL
     Indication: HYPERTENSION
     Route: 064

REACTIONS (6)
  - Premature baby [Unknown]
  - Umbilical hernia [Unknown]
  - Foetal growth restriction [Unknown]
  - Atrial septal defect [Unknown]
  - Exposure during pregnancy [Unknown]
  - Foetal heart rate abnormal [Unknown]
